FAERS Safety Report 5074190-4 (Version None)
Quarter: 2006Q3

REPORT INFORMATION
  Report Type: 
  Country: None (occurrence: None)
  Receive Date: 20060803
  Receipt Date: 20060727
  Transmission Date: 20061208
  Serious: Yes (Other)
  Sender: FDA-Public Use
  Company Number: 2006-04193

PATIENT
  Sex: Female

DRUGS (1)
  1. TRELSTAR DEPOT [Suspect]
     Indication: BREAST CANCER
     Dosage: 3.75 MG, DAILY, INTRAMUSCULAR
     Route: 030
     Dates: start: 20060703

REACTIONS (6)
  - ANGIONEUROTIC OEDEMA [None]
  - DYSPNOEA [None]
  - FLUSHING [None]
  - METRORRHAGIA [None]
  - PAIN [None]
  - RASH [None]
